FAERS Safety Report 11645420 (Version 1)
Quarter: 2015Q4

REPORT INFORMATION
  Report Type: Spontaneous
  Country: US (occurrence: US)
  Receive Date: 20151020
  Receipt Date: 20151020
  Transmission Date: 20160304
  Serious: Yes (Disabling, Other)
  Sender: FDA-Public Use
  Company Number: US-BAYER-200331072BWH

PATIENT
  Age: 59 Year
  Sex: Female
  Weight: 41.36 kg

DRUGS (7)
  1. RITALIN [Concomitant]
     Active Substance: METHYLPHENIDATE HYDROCHLORIDE
     Route: 048
  2. AMBIEN [Concomitant]
     Active Substance: ZOLPIDEM TARTRATE
  3. AVELOX [Suspect]
     Active Substance: MOXIFLOXACIN HYDROCHLORIDE
     Indication: SINUSITIS
     Dosage: 400 MG, QD
     Route: 048
     Dates: start: 20030912, end: 200309
  4. TYLENOL [Concomitant]
     Active Substance: ACETAMINOPHEN
     Indication: PAIN
  5. ARMOUR THYROID [Concomitant]
     Active Substance: THYROID, PORCINE\THYROID, UNSPECIFIED
  6. ZOVIRAX [ACICLOVIR] [Concomitant]
  7. AVELOX [Suspect]
     Active Substance: MOXIFLOXACIN HYDROCHLORIDE
     Indication: SINUSITIS
     Dosage: 400 MG, QD
     Route: 048
     Dates: start: 20031008, end: 20031013

REACTIONS (20)
  - Polymyalgia rheumatica [Recovering/Resolving]
  - Mood altered [None]
  - Dyspnoea [None]
  - Visual impairment [Recovering/Resolving]
  - Red blood cell sedimentation rate increased [Recovering/Resolving]
  - Joint stiffness [Recovering/Resolving]
  - Myalgia [None]
  - Arthralgia [Recovering/Resolving]
  - Joint swelling [Recovering/Resolving]
  - Anaemia [Recovering/Resolving]
  - Abdominal pain upper [Recovered/Resolved]
  - Visual impairment [None]
  - Mental status changes [None]
  - C-reactive protein increased [Recovering/Resolving]
  - Nausea [Recovered/Resolved]
  - Tachyarrhythmia [None]
  - Dizziness [None]
  - Platelet count increased [Recovering/Resolving]
  - Fatigue [Recovering/Resolving]
  - Peripheral swelling [None]

NARRATIVE: CASE EVENT DATE: 20031013
